FAERS Safety Report 19451195 (Version 1)
Quarter: 2021Q2

REPORT INFORMATION
  Report Type: Spontaneous
  Country: US (occurrence: US)
  Receive Date: 20210622
  Receipt Date: 20210622
  Transmission Date: 20210717
  Serious: Yes (Other)
  Sender: FDA-Public Use
  Company Number: None

PATIENT
  Age: 75 Year
  Sex: Male
  Weight: 81 kg

DRUGS (5)
  1. HCTZ [Concomitant]
     Active Substance: HYDROCHLOROTHIAZIDE
  2. CLONIDINE 0.1 MG TAB [Suspect]
     Active Substance: CLONIDINE HYDROCHLORIDE
     Indication: BLOOD PRESSURE FLUCTUATION
     Dosage: ?          QUANTITY:1 CAPSULE(S);?
     Route: 048
  3. LIPITOR [Concomitant]
     Active Substance: ATORVASTATIN CALCIUM
  4. ISOSORBIDE. [Concomitant]
     Active Substance: ISOSORBIDE
  5. NITROQUICK [Concomitant]
     Active Substance: NITROGLYCERIN

REACTIONS (3)
  - Product substitution issue [None]
  - Suspected counterfeit product [None]
  - Drug ineffective [None]

NARRATIVE: CASE EVENT DATE: 20210610
